FAERS Safety Report 9198806 (Version 1)
Quarter: 2013Q1

REPORT INFORMATION
  Report Type: Report from Study
  Country: FR (occurrence: FR)
  Receive Date: 20130329
  Receipt Date: 20130329
  Transmission Date: 20140127
  Serious: Yes (Hospitalization, Other)
  Sender: FDA-Public Use
  Company Number: FR-009507513-1209FRA009939

PATIENT
  Age: 58 Year
  Sex: Male
  Weight: 72.7 kg

DRUGS (18)
  1. BOCEPREVIR [Suspect]
     Indication: HEPATITIS C
  2. PEGASYS [Suspect]
     Indication: HEPATITIS C
     Dosage: 180 MICROGRAM, QD
     Dates: start: 20120822
  3. REBETOL [Suspect]
     Indication: HEPATITIS C
     Dosage: 1000, QD
     Dates: start: 20120822
  4. AVLOCARDYL [Concomitant]
     Indication: PROPHYLAXIS
     Dosage: 0.5 DF, BID
     Dates: start: 200912
  5. METEOSPASMYL (ALVERINE CITRATE (+) SIMETHICONE) [Concomitant]
     Indication: GASTROINTESTINAL DISORDER
     Dosage: 30 MG, TID
     Dates: start: 2000
  6. METEOSPASMYL (ALVERINE CITRATE (+) SIMETHICONE) [Concomitant]
     Dosage: UNK
  7. SPECIAFOLDINE [Concomitant]
     Indication: ANAEMIA PROPHYLAXIS
     Dosage: 5 MG, BID
     Dates: start: 20120822
  8. FUROSEMIDE [Concomitant]
     Indication: OEDEMA PERIPHERAL
     Dosage: 20 MG, QD
     Dates: start: 20120803
  9. FUROSEMIDE [Concomitant]
     Dosage: 40 MG, QD
     Route: 048
     Dates: start: 20121027
  10. PANTOPRAZOLE [Concomitant]
     Indication: GASTROOESOPHAGEAL REFLUX DISEASE
     Dosage: 20 MG, QD
     Dates: start: 2009
  11. KALEORID [Concomitant]
     Indication: OEDEMA PERIPHERAL
     Dosage: 1000 MG, QD
     Dates: start: 20120803
  12. UVEDOSE [Concomitant]
     Indication: VITAMIN D DEFICIENCY
     Dosage: 1 DF, UNK
     Dates: start: 20120822
  13. ACETAMINOPHEN [Concomitant]
     Indication: PRODUCT USED FOR UNKNOWN INDICATION
     Dosage: 500 MG, PRN
     Dates: start: 20120822
  14. NEORECORMON [Concomitant]
     Indication: ANAEMIA PROPHYLAXIS
     Dosage: UNK
     Dates: start: 20120822
  15. DEXERYL CREAM [Concomitant]
     Indication: DRY SKIN PROPHYLAXIS
     Dosage: 1 DF, QD
     Dates: start: 20120822
  16. ALDACTONE TABLETS [Concomitant]
     Indication: PRODUCT USED FOR UNKNOWN INDICATION
     Dosage: 50 MG, UNK
     Dates: start: 20121027
  17. PROPRANOLOL HYDROCHLORIDE [Concomitant]
     Indication: PROPHYLAXIS
     Dosage: 20 MG, QD
     Dates: start: 200912
  18. PROPRANOLOL HYDROCHLORIDE [Concomitant]
     Indication: PROPHYLAXIS

REACTIONS (2)
  - Oesophageal variceal ligation [Recovered/Resolved]
  - Aspartate aminotransferase increased [Recovered/Resolved]
